FAERS Safety Report 15923458 (Version 1)
Quarter: 2019Q1

REPORT INFORMATION
  Report Type: Spontaneous
  Country: DE (occurrence: DE)
  Receive Date: 20190206
  Receipt Date: 20190206
  Transmission Date: 20190417
  Serious: Yes (Hospitalization)
  Sender: FDA-Public Use
  Company Number: DE-ACCORD-105789

PATIENT
  Age: 78 Year
  Sex: Female

DRUGS (21)
  1. DEKRISTOL [Concomitant]
     Active Substance: CHOLECALCIFEROL
     Dosage: 20000 IE, MONTAGS 1-0-0-0
  2. NALOXONE HYDROCHLORIDE/TILIDINE HYDROCHLORIDE [Concomitant]
     Dosage: 1008 MG, 1-0-1-0
  3. RAMIPRIL. [Suspect]
     Active Substance: RAMIPRIL
     Indication: PRODUCT USED FOR UNKNOWN INDICATION
     Dosage: 5 MG, 1-0-1-0
  4. METOPROLOL. [Suspect]
     Active Substance: METOPROLOL
     Indication: PRODUCT USED FOR UNKNOWN INDICATION
     Dosage: 47.5 MG, 0-0-0.5-0
  5. PIPAMPERONE/PIPAMPERONE HYDROCHLORIDE [Concomitant]
     Dosage: 40 MG, AS NEEDED, TABLETS
  6. SIMVASTATIN. [Concomitant]
     Active Substance: SIMVASTATIN
     Dosage: 20 MG, 0-0-1-0
  7. MOVICOL [Concomitant]
     Active Substance: POLYETHYLENE GLYCOL 3350\POTASSIUM CHLORIDE\SODIUM BICARBONATE\SODIUM CHLORIDE
     Dosage: NK MG, MO, MI, FR 1-0-0-0;AS NEEDED
  8. FUROSEMIDE. [Suspect]
     Active Substance: FUROSEMIDE
     Indication: PRODUCT USED FOR UNKNOWN INDICATION
     Dosage: 40 MG, 1-0-0-0
  9. LOPERAMIDE [Concomitant]
     Active Substance: LOPERAMIDE
     Dosage: NK MG, BEDARF
  10. METAMIZOL [Concomitant]
     Active Substance: METAMIZOLE SODIUM
     Dosage: NK MG, AS NEEDED, DROP
  11. ALLOPURINOL/ALLOPURINOL SODIUM [Concomitant]
     Dosage: 100 MG, 1-0-0-0
  12. TRAMADOL. [Concomitant]
     Active Substance: TRAMADOL
     Dosage: NK MG, BEDARF, TROPFEN
  13. PREGABALIN. [Suspect]
     Active Substance: PREGABALIN
     Indication: PRODUCT USED FOR UNKNOWN INDICATION
     Dosage: 100 MG, 1-0-1-0
  14. DULCOLAX NOS [Concomitant]
     Active Substance: BISACODYL OR DOCUSATE SODIUM
     Dosage: 10 MG, BEDARF
  15. PHENPROCOUMON [Concomitant]
     Active Substance: PHENPROCOUMON
     Dosage: 3 MG, NACH INR
  16. ACTRAPID [Concomitant]
     Active Substance: INSULIN HUMAN
     Dosage: NK MG, NACH BZ
  17. NAPROXEN/NAPROXEN AMINOBUTANOL/NAPROXEN SODIUM [Concomitant]
     Dosage: 500 MG, BEDARF
  18. LANTUS [Concomitant]
     Active Substance: INSULIN GLARGINE
     Dosage: 4 IE, 0-0-1-0
  19. MOVICOL [Concomitant]
     Active Substance: POLYETHYLENE GLYCOL 3350\POTASSIUM CHLORIDE\SODIUM BICARBONATE\SODIUM CHLORIDE
     Dosage: NK MG, BEDARF
  20. TAVOR [Concomitant]
     Dosage: 0.5 MG, 1-0-1-0
  21. LEVOTHYROXINE. [Concomitant]
     Active Substance: LEVOTHYROXINE
     Dosage: 25  MICRO G, 1-0-0-0

REACTIONS (1)
  - Hypotension [Unknown]

NARRATIVE: CASE EVENT DATE: 20170528
